FAERS Safety Report 8052163-7 (Version None)
Quarter: 2012Q1

REPORT INFORMATION
  Report Type: 
  Country: None (occurrence: None)
  Receive Date: 20120118
  Receipt Date: 20120112
  Transmission Date: 20120608
  Serious: No
  Sender: FDA-Public Use
  Company Number: US-PFIZER INC-2012010327

PATIENT
  Sex: Female

DRUGS (2)
  1. XANAX [Suspect]
     Indication: PANIC ATTACK
  2. XANAX [Suspect]
     Indication: PALPITATIONS
     Dosage: 1 MG, 3X/DAY

REACTIONS (3)
  - HEADACHE [None]
  - STRESS [None]
  - DEPRESSION [None]
